FAERS Safety Report 8919016 (Version 1)
Quarter: 2012Q4

REPORT INFORMATION
  Report Type: 
  Country: US (occurrence: US)
  Receive Date: 20121121
  Receipt Date: 20121121
  Transmission Date: 20130627
  Serious: Yes (Other)
  Sender: FDA-Public Use
  Company Number: US-JNJFOC-20121013193

PATIENT
  Sex: Female
  Weight: 122.02 kg

DRUGS (5)
  1. TOPAMAX [Suspect]
     Indication: BIPOLAR DISORDER
     Route: 048
  2. LAMICTAL [Suspect]
     Indication: BIPOLAR DISORDER
     Route: 065
  3. RESTORIL [Suspect]
     Indication: INSOMNIA
     Dosage: daily at night as needed
     Route: 048
  4. BENADRYL [Suspect]
     Indication: INSOMNIA
     Dosage: daily at night as needed
     Route: 048
  5. AN UNKNOWN MEDICATION [Suspect]
     Indication: PRODUCT USED FOR UNKNOWN INDICATION
     Route: 065

REACTIONS (5)
  - Visual impairment [Recovered/Resolved]
  - Cataract [Recovered/Resolved]
  - Weight decreased [Recovered/Resolved]
  - Rash pruritic [Recovered/Resolved]
  - Weight increased [Recovered/Resolved]
